FAERS Safety Report 5035081-8 (Version None)
Quarter: 2006Q2

REPORT INFORMATION
  Report Type: 
  Country: None (occurrence: None)
  Receive Date: 20060627
  Receipt Date: 20060620
  Transmission Date: 20061013
  Serious: Yes (Disabling, Other)
  Sender: FDA-Public Use
  Company Number: JP-SP-2006-01569

PATIENT
  Age: 74 Year
  Sex: Male

DRUGS (3)
  1. IMMUCYST [Suspect]
     Indication: CARCINOMA IN SITU OF BLADDER
     Route: 043
     Dates: start: 20050928, end: 20051206
  2. IMMUCYST [Suspect]
     Route: 043
     Dates: start: 20050928, end: 20051206
  3. IMMUCYST [Suspect]
     Route: 043
     Dates: start: 20050928, end: 20051206

REACTIONS (5)
  - ASTHENIA [None]
  - DYSURIA [None]
  - HAEMATURIA [None]
  - NASOPHARYNGITIS [None]
  - PAIN [None]
